FAERS Safety Report 5293477-3 (Version None)
Quarter: 2007Q1

REPORT INFORMATION
  Report Type: 
  Country: None (occurrence: None)
  Receive Date: 20070116
  Receipt Date: 20060130
  Transmission Date: 20070707
  Serious: Yes (Other)
  Sender: FDA-Public Use
  Company Number: HQWYE816415OCT04

PATIENT
  Age: 65 Year
  Sex: Female
  Weight: 54.48 kg

DRUGS (4)
  1. PREMPRO [Suspect]
     Indication: OSTEOPOROSIS
     Dosage: UNSPECIFIED; ORAL
     Route: 048
     Dates: start: 19940101, end: 20010101
  2. PREMPRO [Suspect]
     Indication: PROPHYLAXIS
     Dosage: UNSPECIFIED; ORAL
     Route: 048
     Dates: start: 19940101, end: 20010101
  3. AMEN [Suspect]
  4. PREMARIN [Suspect]

REACTIONS (1)
  - BREAST CANCER [None]
